FAERS Safety Report 24394572 (Version 2)
Quarter: 2024Q4

REPORT INFORMATION
  Report Type: Spontaneous
  Country: JP (occurrence: JP)
  Receive Date: 20241004
  Receipt Date: 20241129
  Transmission Date: 20250114
  Serious: Yes (Hospitalization, Other)
  Sender: BRISTOL-MYERS SQUIBB COMPANY
  Company Number: JP-BRISTOL-MYERS SQUIBB COMPANY-2024-155610

PATIENT
  Age: 91 Year
  Sex: Male
  Weight: 55.5 kg

DRUGS (16)
  1. ELIQUIS [Suspect]
     Active Substance: APIXABAN
     Indication: Atrial fibrillation
     Route: 048
     Dates: end: 20240625
  2. ELIQUIS [Suspect]
     Active Substance: APIXABAN
     Dosage: ON 28-JUN-2024, ELIQUIS RESUMED.
  3. FEBUXOSTAT [Concomitant]
     Active Substance: FEBUXOSTAT
     Indication: Product used for unknown indication
     Route: 048
     Dates: start: 20240628
  4. FUROSEMIDE [Concomitant]
     Active Substance: FUROSEMIDE
     Indication: Product used for unknown indication
  5. TAMSULOSIN HYDROCHLORIDE [Concomitant]
     Active Substance: TAMSULOSIN HYDROCHLORIDE
     Indication: Product used for unknown indication
  6. DUTASTERIDE [Concomitant]
     Active Substance: DUTASTERIDE
     Indication: Product used for unknown indication
  7. BISOPROLOL FUMARATE [Concomitant]
     Active Substance: BISOPROLOL FUMARATE
     Indication: Product used for unknown indication
  8. FEXOFENADINE [Concomitant]
     Active Substance: FEXOFENADINE HYDROCHLORIDE
     Indication: Product used for unknown indication
  9. SENNOSIDES [Concomitant]
     Active Substance: SENNOSIDES
     Indication: Product used for unknown indication
  10. ENALAPRIL MALEATE [Concomitant]
     Active Substance: ENALAPRIL MALEATE
     Indication: Product used for unknown indication
  11. CALONAL [Concomitant]
     Active Substance: ACETAMINOPHEN
     Indication: Product used for unknown indication
  12. MAGNESIUM OXIDE [Concomitant]
     Active Substance: MAGNESIUM OXIDE
     Indication: Product used for unknown indication
  13. ADALAT CC [Concomitant]
     Active Substance: NIFEDIPINE
     Indication: Product used for unknown indication
  14. NITRAZEPAM [Concomitant]
     Active Substance: NITRAZEPAM
     Indication: Product used for unknown indication
  15. FLUTICASONE FUROATE\VILANTEROL TRIFENATATE [Concomitant]
     Active Substance: FLUTICASONE FUROATE\VILANTEROL TRIFENATATE
     Indication: Product used for unknown indication
  16. BIOFERMIN [BIFIDOBACTERIUM NOS] [Concomitant]
     Indication: Product used for unknown indication

REACTIONS (2)
  - Diverticulum intestinal haemorrhagic [Recovering/Resolving]
  - Renal impairment [Unknown]

NARRATIVE: CASE EVENT DATE: 20240625
